FAERS Safety Report 12221946 (Version 2)
Quarter: 2016Q2

REPORT INFORMATION
  Report Type: Report from Study
  Country: US (occurrence: US)
  Receive Date: 20160330
  Receipt Date: 20160418
  Transmission Date: 20160815
  Serious: Yes (Hospitalization, Other)
  Sender: FDA-Public Use
  Company Number: US-GILEAD-2016-0205973

PATIENT
  Age: 53 Year
  Sex: Male
  Weight: 87 kg

DRUGS (11)
  1. WARFARIN [Concomitant]
     Active Substance: WARFARIN
  2. VITAMIN B12 [Concomitant]
     Active Substance: CYANOCOBALAMIN
  3. LASIX [Concomitant]
     Active Substance: FUROSEMIDE
  4. AMBRISENTAN [Suspect]
     Active Substance: AMBRISENTAN
     Indication: PRODUCT USED FOR UNKNOWN INDICATION
     Dosage: 5 MG, QD
     Route: 065
     Dates: start: 20150521
  5. ULTRAM [Suspect]
     Active Substance: TRAMADOL HYDROCHLORIDE
  6. ADEMPAS [Concomitant]
     Active Substance: RIOCIGUAT
  7. GLUCOPHAGE [Concomitant]
     Active Substance: METFORMIN HYDROCHLORIDE
  8. POTASSIUM CHLORIDE. [Concomitant]
     Active Substance: POTASSIUM CHLORIDE
  9. CHANTIX [Concomitant]
     Active Substance: VARENICLINE TARTRATE
  10. CENTRUM SILVER ADULTS 50+ [Concomitant]
     Active Substance: MINERALS\VITAMINS
  11. COUMADIN [Concomitant]
     Active Substance: WARFARIN SODIUM

REACTIONS (3)
  - Respiratory failure [Recovered/Resolved]
  - Influenza [Recovered/Resolved]
  - Oedema peripheral [Unknown]

NARRATIVE: CASE EVENT DATE: 20160306
